FAERS Safety Report 6305376-6 (Version None)
Quarter: 2009Q3

REPORT INFORMATION
  Report Type: 
  Country: None (occurrence: None)
  Receive Date: 20090810
  Receipt Date: 20090810
  Transmission Date: 20100115
  Serious: Yes (Disabling)
  Sender: FDA-Public Use
  Company Number: None

PATIENT
  Age: 82 Year
  Sex: Male
  Weight: 65.7716 kg

DRUGS (4)
  1. PRIMIDONE [Suspect]
     Indication: ESSENTIAL TREMOR
     Dosage: 1/2 TABLET 1 X ORAL 047
     Route: 048
     Dates: start: 20090407
  2. PRIMIDONE [Suspect]
     Indication: ESSENTIAL TREMOR
     Dosage: 1/2 TABLET 1 X ORAL 047
     Route: 048
     Dates: start: 20090408
  3. PRIMIDONE [Suspect]
     Indication: ESSENTIAL TREMOR
     Dosage: 1/2 TABLET 1 X ORAL 047
     Route: 048
     Dates: start: 20090409
  4. CLONAZEPAM [Suspect]
     Indication: CONVULSION
     Dosage: 1 TABLET 1 X ORAL 047
     Route: 048
     Dates: start: 20090213, end: 20090409

REACTIONS (8)
  - ASTHENIA [None]
  - COORDINATION ABNORMAL [None]
  - DRUG INEFFECTIVE [None]
  - DYSSTASIA [None]
  - ESSENTIAL TREMOR [None]
  - HEMIPARESIS [None]
  - MUSCULAR WEAKNESS [None]
  - NEUROPATHY PERIPHERAL [None]
